FAERS Safety Report 9074572 (Version 1)
Quarter: 2013Q1

REPORT INFORMATION
  Report Type: Report from Study
  Country: US (occurrence: US)
  Receive Date: 20130129
  Receipt Date: 20130129
  Transmission Date: 20140127
  Serious: No
  Sender: FDA-Public Use
  Company Number: US-ABBOTT-12P-163-0933448-00

PATIENT
  Age: 59 Year
  Sex: Male

DRUGS (8)
  1. HUMIRA 40 MG/0.8 ML PEN [Suspect]
     Indication: CROHN^S DISEASE
     Dosage: LOADING DOSE
     Dates: start: 20120404, end: 20120404
  2. HUMIRA 40 MG/0.8 ML PEN [Suspect]
     Dosage: LOADING DOSE
     Dates: start: 20120418, end: 20120418
  3. HUMIRA 40 MG/0.8 ML PEN [Suspect]
     Dates: start: 20120501
  4. ASACOL [Concomitant]
     Indication: CROHN^S DISEASE
  5. COREG [Concomitant]
     Indication: CARDIAC FAILURE CONGESTIVE
     Dosage: 1 TABLET DAILY
  6. COREG [Concomitant]
     Indication: INFECTION
  7. QUINAPRIL [Concomitant]
     Indication: INFECTION
     Dosage: 1 TABLET DAILY
  8. QUINAPRIL [Concomitant]
     Indication: CARDIAC FAILURE CONGESTIVE

REACTIONS (4)
  - Crohn^s disease [Recovered/Resolved]
  - Muscle spasms [Recovered/Resolved]
  - Pain [Recovered/Resolved]
  - Nausea [Recovered/Resolved]
